FAERS Safety Report 14380281 (Version 1)
Quarter: 2018Q1

REPORT INFORMATION
  Report Type: Other
  Country: US (occurrence: US)
  Receive Date: 20180112
  Receipt Date: 20180112
  Transmission Date: 20180509
  Serious: Yes (Death)
  Sender: FDA-Public Use
  Company Number: US-PHARMA_RESEARCH_SOFTWARE_SOLUTION-USA-POI0580201800077

PATIENT
  Age: 38 Year
  Sex: Male

DRUGS (6)
  1. POTASSIUM CHLORIDE FOR ORAL SOLUTION [Suspect]
     Active Substance: POTASSIUM CHLORIDE
     Dates: end: 2016
  2. PROMETHAZINE [Suspect]
     Active Substance: PROMETHAZINE\PROMETHAZINE HYDROCHLORIDE
     Dates: end: 2016
  3. HYDROCHLOROTHIAZIDE. [Suspect]
     Active Substance: HYDROCHLOROTHIAZIDE
     Dates: end: 2016
  4. AMLODIPINE [Suspect]
     Active Substance: AMLODIPINE BESYLATE
     Dates: end: 2016
  5. IBUPROFEN. [Suspect]
     Active Substance: IBUPROFEN
     Dates: end: 2016
  6. CLOPIDOGREL [Suspect]
     Active Substance: CLOPIDOGREL BISULFATE
     Dates: end: 2016

REACTIONS (1)
  - Completed suicide [Fatal]

NARRATIVE: CASE EVENT DATE: 2016
